FAERS Safety Report 8099085-3 (Version None)
Quarter: 2012Q1

REPORT INFORMATION
  Report Type: 
  Country: None (occurrence: None)
  Receive Date: 20120129
  Receipt Date: 20111027
  Transmission Date: 20120608
  Serious: No
  Sender: FDA-Public Use
  Company Number: US-ABBOTT-11P-163-0869084-00

PATIENT
  Age: 49 Year
  Sex: Female

DRUGS (10)
  1. ESTRADIOL [Concomitant]
     Indication: PRODUCT USED FOR UNKNOWN INDICATION
  2. CYMBALTA [Concomitant]
     Indication: PRODUCT USED FOR UNKNOWN INDICATION
  3. AMTIZA [Concomitant]
     Indication: CONSTIPATION
  4. ACIPHEX [Concomitant]
     Indication: GASTROOESOPHAGEAL REFLUX DISEASE
  5. PERCOCET [Concomitant]
     Indication: PAIN
  6. HUMIRA [Suspect]
     Dates: start: 20111026, end: 20111026
  7. HUMIRA [Suspect]
  8. HUMIRA [Suspect]
     Indication: CROHN'S DISEASE
     Dates: start: 20111012, end: 20111012
  9. SYNTHROID [Concomitant]
     Indication: PRODUCT USED FOR UNKNOWN INDICATION
  10. MULTIPLE VITAMINS [Concomitant]
     Indication: PRODUCT USED FOR UNKNOWN INDICATION

REACTIONS (3)
  - SINUSITIS [None]
  - PAIN [None]
  - FATIGUE [None]
